FAERS Safety Report 5157371-0 (Version None)
Quarter: 2006Q4

REPORT INFORMATION
  Report Type: 
  Country: None (occurrence: None)
  Receive Date: 20061127
  Receipt Date: 20061031
  Transmission Date: 20070319
  Serious: Yes (Other)
  Sender: FDA-Public Use
  Company Number: TR-AVENTIS-200615525EU

PATIENT
  Age: 71 Year
  Sex: Male

DRUGS (11)
  1. ENOXAPARIN SODIUM [Suspect]
     Indication: THROMBOSIS PROPHYLAXIS
     Route: 058
     Dates: start: 20061002, end: 20061015
  2. GLICLAZIDE [Concomitant]
     Indication: DIABETES MELLITUS
     Dates: start: 20010101
  3. TELMISARTAN [Concomitant]
     Indication: HYPERTENSION
     Dates: start: 20050101
  4. FENTANYL [Concomitant]
     Indication: ANAESTHESIA
     Dates: start: 20061003, end: 20061003
  5. MIDAZOLAM [Concomitant]
     Indication: ANAESTHESIA
     Dates: start: 20061003, end: 20061003
  6. CEFAZOLINE SODIUM W/DEXTROSE [Concomitant]
     Indication: INFECTION PROPHYLAXIS
     Dates: start: 20061003, end: 20061003
  7. BUPIVACAINE [Concomitant]
     Indication: ANAESTHESIA
     Dates: start: 20061003, end: 20061003
  8. TRAMADOL HCL [Concomitant]
     Indication: ANALGESIC EFFECT
     Dates: start: 20061003, end: 20061009
  9. DIPYRONE INJ [Concomitant]
     Indication: ANALGESIC EFFECT
     Dates: start: 20061003, end: 20061009
  10. LANSOPRAZOLE [Concomitant]
     Indication: PROPHYLAXIS AGAINST GASTROINTESTINAL ULCER
     Dates: start: 20061003, end: 20061009
  11. ACETAMINOPHEN [Concomitant]
     Indication: ANALGESIC EFFECT
     Dates: start: 20061003, end: 20061009

REACTIONS (1)
  - THROMBOCYTHAEMIA [None]
